FAERS Safety Report 22605552 (Version 1)
Quarter: 2023Q2

REPORT INFORMATION
  Report Type: Spontaneous
  Country: JP (occurrence: JP)
  Receive Date: 20230615
  Receipt Date: 20230615
  Transmission Date: 20230721
  Serious: Yes (Other)
  Sender: FDA-Public Use
  Company Number: JP-CHUGAI-2023020844

PATIENT
  Age: 64 Year
  Sex: Female

DRUGS (3)
  1. AVASTIN [Suspect]
     Active Substance: BEVACIZUMAB
     Indication: Colorectal cancer
     Dosage: UNK
     Route: 041
  2. XELODA [Suspect]
     Active Substance: CAPECITABINE
     Indication: Colorectal cancer
     Dosage: UNK
     Route: 048
  3. OXALIPLATIN [Concomitant]
     Active Substance: OXALIPLATIN
     Indication: Colorectal cancer
     Dosage: UNK
     Route: 041

REACTIONS (2)
  - Cardiac arrest [Unknown]
  - Anaphylactic reaction [Unknown]
